FAERS Safety Report 6900840-0 (Version None)
Quarter: 2010Q3

REPORT INFORMATION
  Report Type: 
  Country: None (occurrence: None)
  Receive Date: 20100730
  Receipt Date: 20100716
  Transmission Date: 20110219
  Serious: Yes (Hospitalization, Other)
  Sender: FDA-Public Use
  Company Number: 016076

PATIENT
  Sex: Male

DRUGS (3)
  1. KEPPRA [Suspect]
     Indication: EPILEPSY
     Dosage: 1500MG, 500 MG FILM COATED TABLETS - 60 FILM COATED TABLETS ORAL)
     Route: 048
     Dates: start: 20100601, end: 20100714
  2. DEPAKIN (DEPAKIN-CHRONO) [Suspect]
     Indication: EPILEPSY
     Dosage: 1500MG, 500 MG PROLONGED RELEASE TABLETS - 30 TABLETS ORAL)
     Route: 048
     Dates: start: 20100526, end: 20100624
  3. CARDIOASPIRIN (CARDIO [Suspect]
     Indication: THROMBOSIS PROPHYLAXIS
     Dosage: 100MG, 100MG GASTROESISTANT TABLETS - 30 TABLETS ORAL
     Route: 048
     Dates: start: 20100601, end: 20100714

REACTIONS (1)
  - THROMBOCYTOPENIA [None]
